FAERS Safety Report 8425549-6 (Version None)
Quarter: 2012Q2

REPORT INFORMATION
  Report Type: 
  Country: None (occurrence: None)
  Receive Date: 20120611
  Receipt Date: 20120531
  Transmission Date: 20120825
  Serious: Yes (Hospitalization)
  Sender: FDA-Public Use
  Company Number: CO-ELI_LILLY_AND_COMPANY-CO201206000402

PATIENT
  Age: 70 Year
  Sex: Female

DRUGS (5)
  1. FORTEO [Suspect]
     Indication: OSTEOPOROSIS
     Dosage: 20 UG, QD
     Route: 058
  2. RANITIDINE [Concomitant]
  3. ATORVASTATIN CALCIUM [Concomitant]
  4. CALCIUM [Concomitant]
  5. VITAMIN D [Concomitant]

REACTIONS (1)
  - THYROID DISORDER [None]
